FAERS Safety Report 13943597 (Version 1)
Quarter: 2017Q3

REPORT INFORMATION
  Report Type: Spontaneous
  Country: US (occurrence: US)
  Receive Date: 20170907
  Receipt Date: 20170907
  Transmission Date: 20171128
  Serious: Yes (Death, Life-Threatening, Other)
  Sender: FDA-Public Use
  Company Number: US-SUN PHARMACEUTICAL INDUSTRIES LTD-2017US-149186

PATIENT
  Age: 31 Year
  Sex: Female

DRUGS (1)
  1. BUPROPION. [Suspect]
     Active Substance: BUPROPION
     Indication: PRODUCT USED FOR UNKNOWN INDICATION
     Dosage: APPROXIMATELY 13G OF EXTENDED RELEASE BUPROPION
     Route: 048

REACTIONS (7)
  - Status epilepticus [Unknown]
  - Overdose [Fatal]
  - Ventricular tachycardia [Unknown]
  - Aphasia [Unknown]
  - Circulatory collapse [Fatal]
  - Electrocardiogram QRS complex prolonged [Not Recovered/Not Resolved]
  - Shock [Unknown]
